FAERS Safety Report 11349798 (Version 3)
Quarter: 2015Q4

REPORT INFORMATION
  Report Type: Spontaneous
  Country: US (occurrence: US)
  Receive Date: 20150807
  Receipt Date: 20151015
  Transmission Date: 20160304
  Serious: Yes (Other)
  Sender: FDA-Public Use
  Company Number: US-BAYER-2015-392455

PATIENT
  Age: 25 Year
  Sex: Female
  Weight: 77 kg

DRUGS (8)
  1. PULMICORT TURBUHALER [Concomitant]
     Active Substance: BUDESONIDE
  2. LEXAPRO [Concomitant]
     Active Substance: ESCITALOPRAM OXALATE
  3. MAGNEVIST [Suspect]
     Active Substance: GADOPENTETATE DIMEGLUMINE
     Indication: NUCLEAR MAGNETIC RESONANCE IMAGING BRAIN
     Dosage: 15 ML, ONCE
     Route: 042
     Dates: start: 20150723, end: 20150723
  4. VENTOLIN [Concomitant]
     Active Substance: ALBUTEROL SULFATE
     Indication: ASTHMA
  5. MAGNEVIST [Suspect]
     Active Substance: GADOPENTETATE DIMEGLUMINE
     Indication: DEAFNESS
  6. VITAMIN D [Concomitant]
     Active Substance: CHOLECALCIFEROL
  7. RITALIN [Concomitant]
     Active Substance: METHYLPHENIDATE HYDROCHLORIDE
  8. RANITIDINE [Concomitant]
     Active Substance: RANITIDINE\RANITIDINE HYDROCHLORIDE

REACTIONS (8)
  - Pharyngeal oedema [None]
  - Eye swelling [None]
  - Pruritus [None]
  - Respiratory tract congestion [None]
  - Dysphagia [None]
  - Periorbital oedema [None]
  - Dyspnoea [None]
  - Face oedema [None]

NARRATIVE: CASE EVENT DATE: 20150723
